FAERS Safety Report 17419541 (Version 1)
Quarter: 2020Q1

REPORT INFORMATION
  Report Type: Spontaneous
  Country: DE (occurrence: DE)
  Receive Date: 20200214
  Receipt Date: 20200214
  Transmission Date: 20200409
  Serious: Yes (Hospitalization)
  Sender: FDA-Public Use
  Company Number: DE-TEVA-2020-DE-1185928

PATIENT
  Age: 68 Year
  Sex: Male
  Weight: 87.1 kg

DRUGS (5)
  1. CLOZAPIN [Suspect]
     Active Substance: CLOZAPINE
     Indication: HALLUCINATION
     Dosage: 100 MG
     Route: 048
     Dates: start: 201910
  2. LEVODOPA/CARBIDOPA100/25/300 [Concomitant]
     Indication: PARKINSON^S DISEASE
     Route: 048
  3. PANTOPRAZOL [Concomitant]
     Active Substance: PANTOPRAZOLE SODIUM
     Indication: GASTROINTESTINAL DISORDER PROPHYLAXIS
     Dosage: 20 MG
     Route: 048
  4. TORASEMID [Concomitant]
     Active Substance: TORSEMIDE
     Indication: OEDEMA PERIPHERAL
     Dosage: 5 MG
     Route: 048
  5. PREGABALIN. [Concomitant]
     Active Substance: PREGABALIN
     Indication: RESTLESSNESS
     Dosage: 75 MG
     Route: 048
     Dates: start: 201911

REACTIONS (3)
  - Leukopenia [Not Recovered/Not Resolved]
  - Neutrophil count decreased [Not Recovered/Not Resolved]
  - Body temperature increased [Not Recovered/Not Resolved]

NARRATIVE: CASE EVENT DATE: 20191218
